FAERS Safety Report 18323681 (Version 1)
Quarter: 2020Q3

REPORT INFORMATION
  Report Type: Spontaneous
  Country: US (occurrence: US)
  Receive Date: 20200929
  Receipt Date: 20200929
  Transmission Date: 20201103
  Serious: No
  Sender: FDA-Public Use
  Company Number: US-BTG-201900272

PATIENT
  Age: 40 Year
  Sex: Female
  Weight: 67 kg

DRUGS (1)
  1. VARITHENA [Suspect]
     Active Substance: POLIDOCANOL
     Indication: VENOUS HYPERTENSION
     Dosage: 12 CC
     Route: 065

REACTIONS (2)
  - Deep vein thrombosis [Unknown]
  - Off label use [Unknown]
